FAERS Safety Report 18459996 (Version 2)
Quarter: 2021Q4

REPORT INFORMATION
  Report Type: Report from Study
  Country: FR (occurrence: FR)
  Receive Date: 20201103
  Receipt Date: 20211203
  Transmission Date: 20220303
  Serious: Yes (Hospitalization, Other)
  Sender: FDA-Public Use
  Company Number: FR-TAKEDA-FR201712112

PATIENT
  Age: 34 Year
  Sex: Female
  Weight: 84.807 kg

DRUGS (10)
  1. TEDUGLUTIDE [Suspect]
     Active Substance: TEDUGLUTIDE
     Indication: Short-bowel syndrome
     Dosage: 0.050 MILLIGRAM/KILOGRAM, QD
     Route: 065
  2. TEDUGLUTIDE [Suspect]
     Active Substance: TEDUGLUTIDE
     Indication: Short-bowel syndrome
     Dosage: 0.050 MILLIGRAM/KILOGRAM, QD
     Route: 065
  3. TEDUGLUTIDE [Suspect]
     Active Substance: TEDUGLUTIDE
     Indication: Short-bowel syndrome
     Dosage: 0.050 MILLIGRAM/KILOGRAM, QD
     Route: 065
  4. TEDUGLUTIDE [Suspect]
     Active Substance: TEDUGLUTIDE
     Indication: Short-bowel syndrome
     Dosage: 0.050 MILLIGRAM/KILOGRAM, QD
     Route: 065
  5. ASPIRIN [Concomitant]
     Active Substance: ASPIRIN
     Indication: Prophylaxis
     Dosage: UNK, 1X/WEEK
     Route: 048
     Dates: start: 20170213
  6. ESOMEPRAZOLE MAGNESIUM [Concomitant]
     Active Substance: ESOMEPRAZOLE MAGNESIUM
     Indication: Prophylaxis
     Dosage: UNK UNK, UNKNOWN
     Route: 048
     Dates: start: 20170213
  7. ADALIMUMAB [Concomitant]
     Active Substance: ADALIMUMAB
     Indication: Rheumatic disorder
     Dosage: 999.00 UNK
     Route: 058
     Dates: start: 202005
  8. METHOTREXATE [Concomitant]
     Active Substance: METHOTREXATE
     Indication: Rheumatic disorder
     Dosage: 15 MILLIGRAM, 1/WEEK
     Route: 058
     Dates: start: 202005
  9. PREDNISONE [Concomitant]
     Active Substance: PREDNISONE
     Indication: Rheumatic disorder
     Dosage: 10 MILLIGRAM, QD
     Route: 048
     Dates: start: 202005
  10. PREDNISONE [Concomitant]
     Active Substance: PREDNISONE
     Dosage: 20 MILLIGRAM, QD
     Route: 048
     Dates: start: 20131007

REACTIONS (1)
  - Aortoenteric fistula [Recovered/Resolved]

NARRATIVE: CASE EVENT DATE: 20170321
